FAERS Safety Report 9006135 (Version 1)
Quarter: 2013Q1

REPORT INFORMATION
  Report Type: Spontaneous
  Country: US (occurrence: US)
  Receive Date: 20130109
  Receipt Date: 20130109
  Transmission Date: 20140127
  Serious: Yes (Other)
  Sender: FDA-Public Use
  Company Number: US-009507513-0907USA03816

PATIENT
  Age: 35 Year
  Sex: Female
  Weight: 61.24 kg

DRUGS (2)
  1. SINGULAIR [Suspect]
     Indication: UPPER-AIRWAY COUGH SYNDROME
     Dosage: 10 MG, QD
     Route: 048
     Dates: start: 20081104, end: 20081206
  2. SINGULAIR [Suspect]
     Indication: ASTHMA EXERCISE INDUCED

REACTIONS (4)
  - Depression [Unknown]
  - Irritability [Unknown]
  - Malaise [Unknown]
  - Mood altered [Unknown]
